FAERS Safety Report 11938917 (Version 1)
Quarter: 2016Q1

REPORT INFORMATION
  Report Type: Report from Study
  Country: US (occurrence: US)
  Receive Date: 20160122
  Receipt Date: 20160122
  Transmission Date: 20160526
  Serious: Yes (Hospitalization)
  Sender: FDA-Public Use
  Company Number: US-ASTRAZENECA-2015SF04655

PATIENT
  Age: 27693 Day
  Sex: Female

DRUGS (26)
  1. TAGRISSO [Suspect]
     Active Substance: OSIMERTINIB
     Indication: NON-SMALL CELL LUNG CANCER
     Route: 048
     Dates: start: 20150401
  2. PRAVASTATIN [Concomitant]
     Active Substance: PRAVASTATIN\PRAVASTATIN SODIUM
     Indication: HYPERLIPIDAEMIA
     Route: 048
     Dates: start: 20150422
  3. TUDORZA PRESSAIR [Concomitant]
     Active Substance: ACLIDINIUM BROMIDE
     Indication: ASTHMA
     Route: 055
  4. HYDROCHLOROTHIAZIDE. [Concomitant]
     Active Substance: HYDROCHLOROTHIAZIDE
     Indication: HYPERTENSION
     Route: 048
     Dates: start: 20150415
  5. AZD6244 [Suspect]
     Active Substance: SELUMETINIB
     Indication: NON-SMALL CELL LUNG CANCER
     Dosage: 75 MG ORALLY BD ON DAY 1 AND DAY 4 OF EACH WEEK
     Route: 048
     Dates: start: 20150401, end: 20150407
  6. NYSTATIN. [Concomitant]
     Active Substance: NYSTATIN
     Indication: DRY MOUTH
     Dosage: 1 TEASPOON QID
     Route: 048
  7. PROCTOZONE HC [Concomitant]
     Active Substance: HYDROCORTISONE
     Indication: HAEMORRHOIDS
     Dosage: 1 APPLICATION AS NEEDED
     Route: 054
  8. BREO ELLIPTA [Concomitant]
     Active Substance: FLUTICASONE FUROATE\VILANTEROL TRIFENATATE
     Indication: ASTHMA
     Dosage: 1 QD
     Route: 055
  9. MUPIROCIN. [Concomitant]
     Active Substance: MUPIROCIN
     Indication: INFECTION
     Dosage: PRN
     Route: 003
  10. CARVEDILOL. [Concomitant]
     Active Substance: CARVEDILOL
     Indication: ATRIAL FIBRILLATION
     Route: 048
  11. FLECAINIDE [Concomitant]
     Active Substance: FLECAINIDE
     Indication: ATRIAL FIBRILLATION
     Route: 048
  12. DOCUSATE SODIUM. [Concomitant]
     Active Substance: DOCUSATE SODIUM
     Indication: DIARRHOEA
     Route: 048
  13. COUMADIN [Concomitant]
     Active Substance: WARFARIN SODIUM
     Indication: ATRIAL FIBRILLATION
     Route: 048
  14. MEDIPHON [Concomitant]
     Indication: SKIN ULCER
     Dosage: PRN
     Route: 003
     Dates: start: 20150415
  15. DIPHENHYDRAMINE. [Concomitant]
     Active Substance: DIPHENHYDRAMINE
     Indication: MULTIPLE ALLERGIES
     Route: 048
     Dates: start: 20150325
  16. AZD6244 [Suspect]
     Active Substance: SELUMETINIB
     Indication: NON-SMALL CELL LUNG CANCER
     Dosage: 50 MG ORALLY QD ON DAY 1 AND DAY 4 OF EACH WEEK
     Route: 048
     Dates: start: 20150415, end: 20150421
  17. LOSARTAN. [Concomitant]
     Active Substance: LOSARTAN
     Indication: ATRIAL FIBRILLATION
     Route: 048
  18. FERROUS SULFATE [Concomitant]
     Active Substance: FERROUS SULFATE\FERROUS SULFATE, DRIED
     Indication: ANAEMIA
     Route: 048
     Dates: start: 20150528
  19. DRONABINOL. [Concomitant]
     Active Substance: DRONABINOL
     Indication: DECREASED APPETITE
     Route: 048
     Dates: start: 20150325
  20. AZD6244 [Suspect]
     Active Substance: SELUMETINIB
     Indication: NON-SMALL CELL LUNG CANCER
     Dosage: 75 MG ORALLY BD ON DAY 1 AND DAY 4 OF EACH WEEK
     Route: 048
     Dates: start: 20150422, end: 20150428
  21. CALTRATE 600 D [Concomitant]
     Indication: BONE DISORDER
     Dosage: BID
     Route: 048
  22. CULTURELLE [Concomitant]
     Active Substance: LACTOBACILLUS RHAMNOSUS
     Indication: GASTRITIS PROPHYLAXIS
     Dosage: BID
     Route: 048
  23. AMLODIPINE [Concomitant]
     Active Substance: AMLODIPINE BESYLATE
     Indication: HYPERTENSION
     Route: 048
  24. HOMATROPINE-HYDROCODONE [Concomitant]
     Indication: COUGH
     Route: 048
  25. OMEPRAZOLE. [Concomitant]
     Active Substance: OMEPRAZOLE
     Indication: GASTROOESOPHAGEAL REFLUX DISEASE
     Route: 048
  26. PROMETHAZINE [Concomitant]
     Active Substance: PROMETHAZINE\PROMETHAZINE HYDROCHLORIDE
     Indication: NAUSEA
     Dosage: PRN
     Route: 048
     Dates: start: 20150527

REACTIONS (1)
  - Pneumonia [Recovered/Resolved]

NARRATIVE: CASE EVENT DATE: 20151027
